FAERS Safety Report 20178110 (Version 1)
Quarter: 2021Q4

REPORT INFORMATION
  Report Type: Spontaneous
  Country: US (occurrence: US)
  Receive Date: 20211213
  Receipt Date: 20211213
  Transmission Date: 20220303
  Serious: No
  Sender: FDA-Public Use
  Company Number: US-SA-SAC20211207000186

PATIENT
  Age: 34 Year
  Sex: Female

DRUGS (1)
  1. KEVZARA [Suspect]
     Active Substance: SARILUMAB
     Indication: Rheumatoid arthritis
     Dosage: 200 MG, QOW DOSE: 200 MG/1.14 ML, FREQUENCY: EVERY 2 WEEKS, ROUTE: SUBCUTANEOUS
     Route: 058
     Dates: start: 20201218

REACTIONS (2)
  - Injection site reaction [Recovered/Resolved]
  - Product dose omission issue [Unknown]

NARRATIVE: CASE EVENT DATE: 20210101
